FAERS Safety Report 10070947 (Version 1)
Quarter: 2014Q2

REPORT INFORMATION
  Report Type: Spontaneous
  Country: US (occurrence: US)
  Receive Date: 20140410
  Receipt Date: 20140410
  Transmission Date: 20141212
  Serious: Yes (Hospitalization)
  Sender: FDA-Public Use
  Company Number: US-MYLANLABS-2014S1007802

PATIENT
  Age: 63 Year
  Sex: Male

DRUGS (5)
  1. FENTANYL [Suspect]
  2. ZOLOFT [Suspect]
  3. KEPPRA [Suspect]
  4. NUEDEXTA [Suspect]
  5. ZOFRAN [Suspect]

REACTIONS (2)
  - Convulsion [Not Recovered/Not Resolved]
  - Serotonin syndrome [Not Recovered/Not Resolved]
